FAERS Safety Report 4444530-5 (Version None)
Quarter: 2004Q3

REPORT INFORMATION
  Report Type: 
  Country: None (occurrence: None)
  Receive Date: 20040902
  Receipt Date: 20040831
  Transmission Date: 20050211
  Serious: Yes (Other)
  Sender: FDA-Public Use
  Company Number: HQWYE471919JAN04

PATIENT
  Age: 5 Year
  Sex: Male

DRUGS (5)
  1. MYLOTARG [Suspect]
     Dosage: 6 MG/M2, INTRAVENOUS
     Route: 042
     Dates: start: 20030618, end: 20030618
  2. MYLOTARG [Suspect]
     Dosage: 6 MG/M2, INTRAVENOUS
     Route: 042
     Dates: start: 20030709, end: 20030709
  3. MYLOTARG [Suspect]
     Dosage: 6 MG/M2, INTRAVENOUS
     Route: 042
     Dates: start: 20030730, end: 20030730
  4. MYLOTARG [Suspect]
     Dosage: 6 MG/M2, INTRAVENOUS
     Route: 042
     Dates: start: 20030820, end: 20030820
  5. CYTOXAN [Concomitant]

REACTIONS (7)
  - CORD BLOOD TRANSPLANT THERAPY [None]
  - GRAFT VERSUS HOST DISEASE [None]
  - HAEMATEMESIS [None]
  - HEPATIC FIBROSIS [None]
  - HEPATOMEGALY [None]
  - RASH [None]
  - VARICES OESOPHAGEAL [None]
